FAERS Safety Report 9158393 (Version 1)
Quarter: 2013Q1

REPORT INFORMATION
  Report Type: Spontaneous
  Country: US (occurrence: US)
  Receive Date: 20130312
  Receipt Date: 20130312
  Transmission Date: 20140127
  Serious: Yes (Other)
  Sender: FDA-Public Use
  Company Number: US-ABBOTT-13P-163-1061560-00

PATIENT
  Age: 70 Year
  Sex: Male
  Weight: 96.25 kg

DRUGS (2)
  1. ANDROGEL [Suspect]
     Indication: BLOOD TESTOSTERONE DECREASED
     Dosage: 2.5 GRAMS (1/2 PACK A DAY OF 5 GRAM)
     Route: 061
     Dates: start: 2003, end: 20130228
  2. BYSTOLIC [Concomitant]
     Indication: HYPERTENSION

REACTIONS (5)
  - Rotator cuff syndrome [Recovering/Resolving]
  - Rotator cuff syndrome [Recovering/Resolving]
  - Musculoskeletal pain [Recovering/Resolving]
  - Musculoskeletal pain [Not Recovered/Not Resolved]
  - Sports injury [Not Recovered/Not Resolved]
